FAERS Safety Report 21633501 (Version 1)
Quarter: 2022Q4

REPORT INFORMATION
  Report Type: Report from Study
  Country: IN (occurrence: IN)
  Receive Date: 20221123
  Receipt Date: 20221123
  Transmission Date: 20230112
  Serious: Yes (Other)
  Sender: FDA-Public Use
  Company Number: IN-BRISTOL-MYERS SQUIBB COMPANY-2022-140829

PATIENT
  Age: 45 Year
  Sex: Male

DRUGS (1)
  1. NIVOLUMAB [Suspect]
     Active Substance: NIVOLUMAB
     Indication: Renal cell carcinoma
     Dosage: 2WEEKLY
     Route: 042
     Dates: start: 20200128

REACTIONS (1)
  - Gastrointestinal disorder [Recovered/Resolved]
